FAERS Safety Report 19901040 (Version 1)
Quarter: 2021Q3

REPORT INFORMATION
  Report Type: Spontaneous
  Country: US (occurrence: US)
  Receive Date: 20210929
  Receipt Date: 20210929
  Transmission Date: 20211014
  Serious: No
  Sender: FDA-Public Use
  Company Number: US-BIOMARINAP-US-2021-138601

PATIENT
  Age: 32 Year
  Sex: Female

DRUGS (1)
  1. PALYNZIQ [Suspect]
     Active Substance: PEGVALIASE-PQPZ
     Indication: PHENYLKETONURIA
     Dosage: 2.5 MILLIGRAM, QW
     Route: 058
     Dates: start: 20210802

REACTIONS (5)
  - Chills [Unknown]
  - Rash [Unknown]
  - Arthralgia [Unknown]
  - Injection site reaction [Unknown]
  - Mass [Unknown]

NARRATIVE: CASE EVENT DATE: 20210827
